FAERS Safety Report 24893947 (Version 1)
Quarter: 2025Q1

REPORT INFORMATION
  Report Type: Spontaneous
  Country: US (occurrence: None)
  Receive Date: 20250127
  Receipt Date: 20250127
  Transmission Date: 20250409
  Serious: Yes (Death)
  Sender: FDA-CTU
  Company Number: None

PATIENT
  Age: 4 Year
  Sex: Female

DRUGS (1)
  1. PULMOZYME [Suspect]
     Active Substance: DORNASE ALFA
     Indication: Product used for unknown indication
     Dosage: FREQUENCY : DAILY;?
     Route: 055
     Dates: start: 20241227, end: 20250127

REACTIONS (1)
  - Death [None]

NARRATIVE: CASE EVENT DATE: 20250127
